FAERS Safety Report 4562556-8 (Version None)
Quarter: 2005Q1

REPORT INFORMATION
  Report Type: 
  Country: None (occurrence: None)
  Receive Date: 20050127
  Receipt Date: 20050114
  Transmission Date: 20050727
  Serious: Yes (Other)
  Sender: FDA-Public Use
  Company Number: US-MERCK-0501USA02754

PATIENT
  Age: 16 Year
  Sex: Female

DRUGS (7)
  1. ELSPAR [Suspect]
     Indication: ACUTE LYMPHOCYTIC LEUKAEMIA
     Route: 042
  2. ELSPAR [Suspect]
     Route: 042
  3. PREDNISONE [Concomitant]
     Route: 048
  4. VINCRISTINE SULFATE [Concomitant]
     Route: 042
  5. DOXORUBICIN [Concomitant]
     Route: 042
  6. METHOTREXATE [Concomitant]
     Route: 065
  7. PREDNISOLONE [Concomitant]
     Route: 042

REACTIONS (11)
  - BLINDNESS [None]
  - CEREBROVASCULAR DISORDER [None]
  - COMA [None]
  - HAEMORRHAGIC CEREBRAL INFARCTION [None]
  - HAEMORRHAGIC INFARCTION [None]
  - HEADACHE [None]
  - HYPERREFLEXIA [None]
  - IIIRD NERVE PARALYSIS [None]
  - POSTURING [None]
  - UNRESPONSIVE TO PAIN STIMULI [None]
  - VISION BLURRED [None]
